FAERS Safety Report 4335300-7 (Version None)
Quarter: 2004Q2

REPORT INFORMATION
  Report Type: 
  Country: None (occurrence: None)
  Receive Date: 20040408
  Receipt Date: 20040408
  Transmission Date: 20050107
  Serious: Yes (Hospitalization, Disabling)
  Sender: FDA-Public Use
  Company Number: None

PATIENT
  Sex: Female

DRUGS (14)
  1. HEPARIN [Suspect]
     Indication: DEEP VEIN THROMBOSIS
     Dosage: 700 UNITS/HR IV CONT INF
     Route: 042
     Dates: start: 20031207, end: 20031208
  2. ALBUTEROL [Concomitant]
  3. ATORAVASTATIN [Concomitant]
  4. CALCIUM CHLORIDE [Concomitant]
  5. CHLOROTHIAZIDE [Concomitant]
  6. DOCUSATE [Concomitant]
  7. IPRATROPIUM BROMIDE [Concomitant]
  8. LANSOPRAZOLE [Concomitant]
  9. NYSTATIN [Concomitant]
  10. MILRINONE [Concomitant]
  11. AMIODARONE HCL [Concomitant]
  12. EPINEPHRINE [Concomitant]
  13. FUROSEMIDE [Concomitant]
  14. PROPOFOL [Concomitant]

REACTIONS (10)
  - ACTIVATED PARTIAL THROMBOPLASTIN TIME PROLONGED [None]
  - ATRIAL FIBRILLATION [None]
  - DEEP VEIN THROMBOSIS [None]
  - HEPARIN-INDUCED THROMBOCYTOPENIA [None]
  - HYPOTENSION [None]
  - INTERNATIONAL NORMALISED RATIO DECREASED [None]
  - LEG AMPUTATION [None]
  - OLIGURIA [None]
  - PULSE ABSENT [None]
  - RESPIRATORY ARREST [None]
